FAERS Safety Report 20612685 (Version 10)
Quarter: 2023Q1

REPORT INFORMATION
  Report Type: Report from Study
  Country: GB (occurrence: None)
  Receive Date: 20220318
  Receipt Date: 20230224
  Transmission Date: 20230418
  Serious: Yes (Life-Threatening, Hospitalization)
  Sender: FDA-Public Use
  Company Number: GB-ROCHE-3050685

PATIENT
  Age: 64 Year
  Sex: Male

DRUGS (13)
  1. ATEZOLIZUMAB [Suspect]
     Active Substance: ATEZOLIZUMAB
     Indication: Oesophageal cancer metastatic
     Dosage: DATE OF MOST RECENT DOSE (1200MG) OF ATEZOLIZUMAB PRIOR TO AE 09/FEB/2022 AND 02/MAR/2022
     Route: 041
     Dates: start: 20210922
  2. FLUOROURACIL [Suspect]
     Active Substance: FLUOROURACIL
     Indication: Oesophageal cancer metastatic
     Dosage: DATE OF MOST RECENT DOSE OF 5-FLUOROURACIL PRIOR TO AE (1520 MG) , (5700MG): 09/FEB/2022, 14/FEB/20
     Route: 042
     Dates: start: 20210922
  3. CISPLATIN [Suspect]
     Active Substance: CISPLATIN
     Indication: Oesophageal cancer metastatic
     Dosage: DATE OF MOST RECENT DOSE OF CISPLATIN PRIOR TO AE(114 MG): 12/JAN/2022
     Route: 042
     Dates: start: 20210922
  4. OMEPRAZOLE [Concomitant]
     Active Substance: OMEPRAZOLE
     Indication: Dyspepsia
     Route: 048
     Dates: start: 20210928, end: 20230220
  5. PENICILLIN V [Concomitant]
     Active Substance: PENICILLIN V
     Indication: Prophylaxis
     Route: 048
     Dates: start: 202110
  6. TINZAPARIN [Concomitant]
     Active Substance: TINZAPARIN
     Indication: Deep vein thrombosis
     Route: 058
     Dates: start: 20220201, end: 20220201
  7. TINZAPARIN [Concomitant]
     Active Substance: TINZAPARIN
     Dosage: 14000 U
     Route: 058
     Dates: start: 20211111, end: 20220201
  8. CHOLECALCIFEROL [Concomitant]
     Active Substance: CHOLECALCIFEROL
     Dosage: REPLACEMENT FOR LOW VIT D
     Route: 048
     Dates: start: 202110, end: 20230220
  9. PIPERACILLIN SODIUM\TAZOBACTAM SODIUM [Concomitant]
     Active Substance: PIPERACILLIN SODIUM\TAZOBACTAM SODIUM
     Indication: Sepsis
     Dosage: 2 DOSES
     Route: 042
     Dates: start: 20220210, end: 20220210
  10. AMOXICILLIN\CLAVULANATE POTASSIUM [Concomitant]
     Active Substance: AMOXICILLIN\CLAVULANATE POTASSIUM
     Indication: Sepsis
     Route: 048
     Dates: start: 20220210, end: 20220217
  11. METOCLOPRAMIDE [Concomitant]
     Active Substance: METOCLOPRAMIDE
     Indication: Nausea
     Route: 048
     Dates: start: 20210926, end: 20230220
  12. DOMPERIDONE [Concomitant]
     Active Substance: DOMPERIDONE
     Indication: Nausea
     Route: 048
     Dates: start: 20210920, end: 20230220
  13. ONDANSETRON [Concomitant]
     Active Substance: ONDANSETRON
     Indication: Nausea
     Route: 048
     Dates: start: 202110, end: 20230220

REACTIONS (5)
  - Constipation [Recovered/Resolved]
  - Nausea [Recovered/Resolved]
  - Vomiting [Recovered/Resolved]
  - Obstruction gastric [Recovered/Resolved]
  - Sepsis [Recovered/Resolved with Sequelae]

NARRATIVE: CASE EVENT DATE: 20220210
